FAERS Safety Report 6975412-2 (Version None)
Quarter: 2010Q3

REPORT INFORMATION
  Report Type: 
  Country: None (occurrence: None)
  Receive Date: 20100910
  Receipt Date: 20090319
  Transmission Date: 20110219
  Serious: No
  Sender: FDA-Public Use
  Company Number: US-WYE-H08654109

PATIENT
  Sex: Male
  Weight: 85.81 kg

DRUGS (4)
  1. PRISTIQ [Suspect]
     Indication: ANXIETY
     Route: 048
     Dates: start: 20090317
  2. VITAMIN B3 [Concomitant]
  3. LEXAPRO [Suspect]
     Indication: ANXIETY
  4. ACETYLSALICYLIC ACID [Concomitant]

REACTIONS (4)
  - ANXIETY [None]
  - FEELING JITTERY [None]
  - MYALGIA [None]
  - PALPITATIONS [None]
